FAERS Safety Report 21665933 (Version 10)
Quarter: 2023Q1

REPORT INFORMATION
  Report Type: Report from Study
  Country: US (occurrence: None)
  Receive Date: 20221201
  Receipt Date: 20230117
  Transmission Date: 20230418
  Serious: Yes (Hospitalization)
  Sender: FDA-Public Use
  Company Number: US-ROCHE-3225729

PATIENT
  Age: 62 Year
  Sex: Female

DRUGS (2)
  1. ATEZOLIZUMAB [Suspect]
     Active Substance: ATEZOLIZUMAB
     Indication: Endometrial cancer recurrent
     Dosage: LAST DOSE GIVEN ON 03/NOV/2022 AT 1680 MG
     Route: 041
     Dates: start: 20221007
  2. IPATASERTIB [Suspect]
     Active Substance: IPATASERTIB
     Indication: Endometrial cancer recurrent
     Dosage: LAST DOSE GIVEN AT 22/NOV/2022 AT 400 MG ?21 DAYS OF EACH 28-DAY CYCLE.
     Route: 048
     Dates: start: 20221007

REACTIONS (1)
  - Hyperglycaemia [Recovered/Resolved with Sequelae]

NARRATIVE: CASE EVENT DATE: 20221122
